FAERS Safety Report 16939841 (Version 5)
Quarter: 2023Q2

REPORT INFORMATION
  Report Type: Spontaneous
  Country: ES (occurrence: ES)
  Receive Date: 20191021
  Receipt Date: 20230518
  Transmission Date: 20230721
  Serious: Yes (Hospitalization)
  Sender: FDA-Public Use
  Company Number: None

PATIENT
  Age: 40 Year
  Sex: Male

DRUGS (5)
  1. LEVOFLOXACIN [Suspect]
     Active Substance: LEVOFLOXACIN
     Indication: Febrile neutropenia
     Dosage: 500 MILLIGRAM DAILY; LEVOFLOXACINO (2791A)
     Route: 048
     Dates: start: 20190211, end: 20190222
  2. FLUCONAZOLE [Concomitant]
     Active Substance: FLUCONAZOLE
     Indication: Product used for unknown indication
     Dosage: 200 MILLIGRAM DAILY; FLUCONAZOL (2432A)
     Route: 048
     Dates: start: 20190208, end: 20190225
  3. ACYCLOVIR [Concomitant]
     Active Substance: ACYCLOVIR
     Indication: Product used for unknown indication
     Dosage: 1600 MILLIGRAM DAILY; ACICLOVIR (201A)
     Route: 048
     Dates: start: 20190203, end: 20190208
  4. IMMUNOGLOBULIN RABBIT ANTI-HUMAN T LYMPHOCYTES [Concomitant]
     Indication: Prophylaxis against transplant rejection
     Dosage: UNK,IMMUNOGLOBULIN RABBIT ANTI-HUMAN T LYMPHOCYTES (2639A)
     Route: 042
     Dates: start: 20190204, end: 20190206
  5. CEFTRIAXONE [Concomitant]
     Active Substance: CEFTRIAXONE
     Indication: Pyrexia
     Dosage: 2 GRAM DAILY; CEFTRIAXONA (501A)
     Route: 042
     Dates: start: 20190206, end: 20190211

REACTIONS (1)
  - Neuralgic amyotrophy [Recovered/Resolved]

NARRATIVE: CASE EVENT DATE: 20190217
